FAERS Safety Report 15422633 (Version 2)
Quarter: 2018Q4

REPORT INFORMATION
  Report Type: Report from Study
  Country: IN (occurrence: IN)
  Receive Date: 20180925
  Receipt Date: 20181009
  Transmission Date: 20190204
  Serious: Yes (Death, Other)
  Sender: FDA-Public Use
  Company Number: IN-AMGEN-INDSP2018132779

PATIENT
  Age: 38 Year
  Sex: Male

DRUGS (1)
  1. VECTIBIX [Suspect]
     Active Substance: PANITUMUMAB
     Indication: METASTATIC NEOPLASM
     Dosage: UNK (3 VIALS/15 DAYS)
     Route: 042
     Dates: start: 20180818, end: 20180919

REACTIONS (1)
  - Death [Fatal]

NARRATIVE: CASE EVENT DATE: 20180919
